FAERS Safety Report 10633446 (Version 1)
Quarter: 2014Q4

REPORT INFORMATION
  Report Type: Spontaneous
  Country: IN (occurrence: IN)
  Receive Date: 20141205
  Receipt Date: 20141205
  Transmission Date: 20150529
  Serious: Yes (Other)
  Sender: FDA-Public Use
  Company Number: IN-SUN PHARMACEUTICAL INDUSTRIES LTD-2014SUN02739

PATIENT
  Age: 65 Year
  Sex: Female

DRUGS (2)
  1. TEMOZOLOMIDE. [Concomitant]
     Active Substance: TEMOZOLOMIDE
     Indication: GLIOBLASTOMA MULTIFORME
  2. PHENYTOIN SODIUM. [Suspect]
     Active Substance: PHENYTOIN SODIUM
     Indication: GLIOBLASTOMA MULTIFORME
     Dosage: 100 MG, TID
     Route: 065

REACTIONS (3)
  - Nicotinic acid deficiency [Recovered/Resolved]
  - Dermatitis [Recovered/Resolved]
  - Glossitis [Recovered/Resolved]
